FAERS Safety Report 24594807 (Version 1)
Quarter: 2024Q4

REPORT INFORMATION
  Report Type: Spontaneous
  Country: GB (occurrence: GB)
  Receive Date: 20241108
  Receipt Date: 20241108
  Transmission Date: 20250115
  Serious: Yes (Other)
  Sender: ABBVIE
  Company Number: None

PATIENT
  Age: 27 Year
  Sex: Female

DRUGS (2)
  1. CITALOPRAM [Suspect]
     Active Substance: CITALOPRAM
     Indication: Anxiety disorder
     Dosage: 20 MILLIGRAM?END DATE WAS 2024
     Route: 048
     Dates: start: 20240810
  2. CITALOPRAM [Suspect]
     Active Substance: CITALOPRAM
     Indication: Anxiety disorder
     Dosage: 30MG ONCE A DAY IN THE MORNING, INCREASED FROM 20MG ONCE A DAY IN THE MORNING
     Route: 048
     Dates: start: 20241031

REACTIONS (2)
  - Poor quality sleep [Unknown]
  - Somnolence [Not Recovered/Not Resolved]

NARRATIVE: CASE EVENT DATE: 20241031
